FAERS Safety Report 9051483 (Version 1)
Quarter: 2013Q1

REPORT INFORMATION
  Report Type: Spontaneous
  Country: US (occurrence: US)
  Receive Date: 20130206
  Receipt Date: 20130206
  Transmission Date: 20140127
  Serious: No
  Sender: FDA-Public Use
  Company Number: US-ALLERGAN-1215127US

PATIENT
  Sex: Female

DRUGS (4)
  1. RESTASIS [Suspect]
     Indication: DRY EYE
     Dosage: 2 GTT, BID
     Route: 047
     Dates: start: 201208
  2. ZYRTEC                             /00884302/ [Concomitant]
     Indication: SEASONAL ALLERGY
     Dosage: UNK UNK, QHS
     Route: 048
  3. SYNTHROID [Concomitant]
     Indication: HYPOTHYROIDISM
     Dosage: 0.088 ?G, QAM
     Route: 048
  4. SYSTANE [Concomitant]
     Indication: DRY EYE
     Dosage: UNK UNK, PRN
     Route: 047

REACTIONS (2)
  - Instillation site pain [Not Recovered/Not Resolved]
  - Instillation site pain [Not Recovered/Not Resolved]
